FAERS Safety Report 22534986 (Version 1)
Quarter: 2023Q2

REPORT INFORMATION
  Report Type: Spontaneous
  Country: US (occurrence: None)
  Receive Date: 20230607
  Receipt Date: 20230607
  Transmission Date: 20230722
  Serious: Yes (Death)
  Sender: FDA-Public Use
  Company Number: None

PATIENT
  Age: 80 Year
  Sex: Male
  Weight: 85.73 kg

DRUGS (14)
  1. ABIRATERONE [Suspect]
     Active Substance: ABIRATERONE
     Indication: Prostate cancer
     Dosage: FREQUENCY : DAILY;?
     Route: 048
     Dates: start: 20220209, end: 20230510
  2. Allopurinol 100 mg tabs [Concomitant]
  3. Amlodipine 10 mg tabs [Concomitant]
  4. Atenolol 50 mg tabs [Concomitant]
  5. Atorvastatin 40 mg tabs [Concomitant]
  6. LISINOPRIL [Concomitant]
     Active Substance: LISINOPRIL
  7. Omeprazole 20 mg caps [Concomitant]
  8. prednisone 5 mg tabs [Concomitant]
  9. Tamsulosin 0.4 mg caps [Concomitant]
  10. Aspirin 81 mg tabs [Concomitant]
  11. Xarelto 10 mg tabs [Concomitant]
  12. Furosemide 20 mg tabs [Concomitant]
  13. Metoprolol ER 50 MG TABS [Concomitant]
  14. CALCIUM 600 MG and VITAMIN D 400 IU [Concomitant]

REACTIONS (1)
  - Hospitalisation [None]

NARRATIVE: CASE EVENT DATE: 20230510
